FAERS Safety Report 5695812-0 (Version None)
Quarter: 2008Q2

REPORT INFORMATION
  Report Type: 
  Country: None (occurrence: None)
  Receive Date: 20080407
  Receipt Date: 20080324
  Transmission Date: 20081010
  Serious: Yes (Other)
  Sender: FDA-Public Use
  Company Number: US-ROCHE-554906

PATIENT
  Sex: Female

DRUGS (7)
  1. PEGASYS [Suspect]
     Indication: HEPATITIS C
     Dosage: FORM: PRE-FILLED SYRINGE
     Route: 065
     Dates: start: 20080321
  2. PEGYLATED INTERFERON NOS [Suspect]
     Indication: HEPATITIS C
     Route: 065
     Dates: start: 20020101
  3. RIBAVIRIN [Suspect]
     Indication: HEPATITIS C
     Dosage: 600 MG IN MORNING AND 600 MG IN EVENING.
     Route: 065
     Dates: start: 20080322
  4. PROZAC [Concomitant]
     Indication: DEPRESSION
     Dates: start: 19920101, end: 20070101
  5. TRAZODONE HCL [Concomitant]
     Indication: SOMNOLENCE
     Dosage: DOSE: AT NIGHT
  6. SEROQUEL [Concomitant]
     Dosage: DOSE: 25 MG AT NIGHT
  7. PRILOSEC [Concomitant]
     Dosage: DOSE: AT NIGHT

REACTIONS (11)
  - AGGRESSION [None]
  - BLOOD POTASSIUM DECREASED [None]
  - CHILLS [None]
  - DIARRHOEA [None]
  - FATIGUE [None]
  - LIVER DISORDER [None]
  - NAUSEA [None]
  - PLATELET COUNT DECREASED [None]
  - PROCEDURAL COMPLICATION [None]
  - PSYCHOTIC DISORDER [None]
  - WHITE BLOOD CELL COUNT DECREASED [None]
